FAERS Safety Report 16650595 (Version 2)
Quarter: 2019Q3

REPORT INFORMATION
  Report Type: Report from Study
  Country: CA (occurrence: CA)
  Receive Date: 20190731
  Receipt Date: 20190913
  Transmission Date: 20191004
  Serious: Yes (Death)
  Sender: FDA-Public Use
  Company Number: CA-TAIHO ONCOLOGY  INC-EU-2019-02524

PATIENT
  Age: 63 Year
  Sex: Female
  Weight: 63.56 kg

DRUGS (16)
  1. ATORVASTATIN [Concomitant]
     Active Substance: ATORVASTATIN
     Dates: start: 20190302
  2. SYMBICORT [Concomitant]
     Active Substance: BUDESONIDE\FORMOTEROL FUMARATE DIHYDRATE
     Dosage: NI
  3. PROCHLORPERAZINE. [Concomitant]
     Active Substance: PROCHLORPERAZINE
     Dates: start: 20181205
  4. ACT CELECOXIB [Concomitant]
     Dates: start: 20181002
  5. PRO CAL [Concomitant]
     Dates: start: 20190302
  6. APP ALENDRONATE [Concomitant]
     Dates: start: 20190328
  7. PREGABALIN. [Concomitant]
     Active Substance: PREGABALIN
     Dates: start: 20181107
  8. ADVAIR HFA [Concomitant]
     Active Substance: FLUTICASONE PROPIONATE\SALMETEROL XINAFOATE
     Dates: start: 20190402
  9. DOLORAL [Concomitant]
     Dates: start: 20190402
  10. LONSURF [Suspect]
     Active Substance: TIPIRACIL HYDROCHLORIDE\TRIFLURIDINE
     Indication: COLORECTAL CANCER METASTATIC
     Dosage: CYCLE 1 ENDED ON 23/JUN/2019
     Route: 048
     Dates: start: 20190429, end: 2019
  11. LOPERAMIDE [Concomitant]
     Active Substance: LOPERAMIDE
     Dates: start: 20181206
  12. APO EZETIMIBE [Concomitant]
     Dates: start: 20190302
  13. PANTOPRAZOLE [Concomitant]
     Active Substance: PANTOPRAZOLE
     Dosage: EXTENDED RELEASE
     Dates: start: 20181227
  14. SPIRIVA [Concomitant]
     Active Substance: TIOTROPIUM BROMIDE MONOHYDRATE
     Dates: start: 20190402
  15. VIT D [Concomitant]
     Active Substance: VITAMIN D NOS
     Dates: start: 20190328
  16. CODEINE [Concomitant]
     Active Substance: CODEINE
     Dates: start: 20190105

REACTIONS (1)
  - Respiratory failure [Fatal]

NARRATIVE: CASE EVENT DATE: 20190630
